FAERS Safety Report 8483158-7 (Version None)
Quarter: 2012Q3

REPORT INFORMATION
  Report Type: 
  Country: None (occurrence: None)
  Receive Date: 20120702
  Receipt Date: 20120619
  Transmission Date: 20120928
  Serious: No
  Sender: FDA-Public Use
  Company Number: US-ASTRAZENECA-2011SE18004

PATIENT
  Age: 51 Year
  Sex: Female

DRUGS (2)
  1. NEXIUM [Suspect]
     Route: 048
  2. PRILOSEC OTC [Suspect]
     Route: 048

REACTIONS (11)
  - GASTROOESOPHAGEAL REFLUX DISEASE [None]
  - NAUSEA [None]
  - DRUG DOSE OMISSION [None]
  - CHOKING [None]
  - VOMITING [None]
  - DRUG INEFFECTIVE [None]
  - COUGH [None]
  - REGURGITATION [None]
  - OROPHARYNGEAL PAIN [None]
  - ADVERSE DRUG REACTION [None]
  - DYSPHAGIA [None]
